FAERS Safety Report 6784651-5 (Version None)
Quarter: 2010Q2

REPORT INFORMATION
  Report Type: 
  Country: None (occurrence: None)
  Receive Date: 20100622
  Receipt Date: 20100616
  Transmission Date: 20101027
  Serious: Yes (Hospitalization, Other)
  Sender: FDA-Public Use
  Company Number: B0660832A

PATIENT
  Sex: Male

DRUGS (18)
  1. AUGMENTIN '125' [Suspect]
     Indication: DRUG USE FOR UNKNOWN INDICATION
     Dosage: 1G THREE TIMES PER DAY
     Route: 065
     Dates: start: 20091106, end: 20100526
  2. GLUCOPHAGE [Concomitant]
     Dosage: 1000MG THREE TIMES PER DAY
     Route: 065
     Dates: end: 20100521
  3. GLUCOR [Concomitant]
     Dosage: 100MG THREE TIMES PER DAY
     Route: 065
     Dates: end: 20100521
  4. LANTUS [Concomitant]
     Dosage: 26IU AT NIGHT
     Route: 065
  5. NOVORAPID [Concomitant]
     Route: 065
  6. TAHOR [Concomitant]
     Dosage: 20MG AT NIGHT
     Route: 065
  7. LASIX [Concomitant]
     Dosage: 40MG IN THE MORNING
     Route: 065
     Dates: end: 20100520
  8. COVERSYL [Concomitant]
     Dosage: 10MG IN THE MORNING
     Route: 065
  9. AMLOR [Concomitant]
     Dosage: 5MG AT NIGHT
     Route: 065
     Dates: end: 20100520
  10. KARDEGIC [Concomitant]
     Dosage: 160MG PER DAY
     Route: 065
  11. SECTRAL [Concomitant]
     Dosage: 200MG TWICE PER DAY
     Route: 065
  12. NEURONTIN [Concomitant]
     Dosage: 400MG AT NIGHT
     Route: 065
     Dates: end: 20100520
  13. SPECIAFOLDINE [Concomitant]
     Dosage: 5MG THREE TIMES PER DAY
     Route: 065
  14. DAFALGAN [Concomitant]
     Dosage: 1G THREE TIMES PER DAY
     Route: 065
  15. INIPOMP [Concomitant]
     Dosage: 20MG AT NIGHT
     Route: 065
  16. FRAGMIN [Concomitant]
     Dosage: 5000IU IN THE MORNING
     Route: 065
  17. DEXERYL (FRANCE) [Concomitant]
     Route: 065
  18. OXYPLASTINE [Concomitant]
     Route: 065

REACTIONS (9)
  - BLOOD ALKALINE PHOSPHATASE INCREASED [None]
  - CHOLANGITIS [None]
  - CHOLECYSTITIS ACUTE [None]
  - CHOLELITHIASIS [None]
  - CHOLESTASIS [None]
  - GAMMA-GLUTAMYLTRANSFERASE INCREASED [None]
  - HEPATITIS CHOLESTATIC [None]
  - HEPATOCELLULAR INJURY [None]
  - PERITONEAL DISORDER [None]
